FAERS Safety Report 5149626-0 (Version None)
Quarter: 2006Q4

REPORT INFORMATION
  Report Type: 
  Country: None (occurrence: None)
  Receive Date: 20061113
  Receipt Date: 20060621
  Transmission Date: 20070319
  Serious: No
  Sender: FDA-Public Use
  Company Number: US-GLAXOSMITHKLINE-A0609841A

PATIENT
  Age: 80 Year
  Sex: Male
  Weight: 73.6 kg

DRUGS (4)
  1. COREG [Suspect]
     Indication: DRUG USE FOR UNKNOWN INDICATION
     Route: 048
     Dates: start: 20060330
  2. ENALAPRIL MALEATE [Concomitant]
     Indication: CHRONIC OBSTRUCTIVE PULMONARY DISEASE
     Dosage: 2.5MG TWICE PER DAY
     Route: 048
  3. LIPITOR [Concomitant]
     Dosage: 20MG PER DAY
     Route: 048
  4. LASIX [Concomitant]
     Dosage: 20MG PER DAY
     Route: 048

REACTIONS (1)
  - NIGHT SWEATS [None]
